FAERS Safety Report 12898382 (Version 2)
Quarter: 2016Q4

REPORT INFORMATION
  Report Type: Spontaneous
  Country: BR (occurrence: BR)
  Receive Date: 20161031
  Receipt Date: 20161102
  Transmission Date: 20170207
  Serious: Yes (Hospitalization, Other)
  Sender: FDA-Public Use
  Company Number: ALCN2016BR006116

PATIENT
  Sex: Female
  Weight: 76 kg

DRUGS (1)
  1. MAXITROL [Suspect]
     Active Substance: DEXAMETHASONE\NEOMYCIN SULFATE\POLYMYXIN B SULFATE
     Indication: PRODUCT USED FOR UNKNOWN INDICATION
     Dosage: UNK
     Route: 047

REACTIONS (7)
  - Ocular hyperaemia [Unknown]
  - Intraocular pressure increased [Unknown]
  - Blindness [Unknown]
  - Optic nerve injury [Unknown]
  - Sinusitis [Unknown]
  - Eye irritation [Unknown]
  - Lacrimation increased [Unknown]
